FAERS Safety Report 8242416-1 (Version None)
Quarter: 2012Q1

REPORT INFORMATION
  Report Type: 
  Country: None (occurrence: None)
  Receive Date: 20120329
  Receipt Date: 20120319
  Transmission Date: 20120608
  Serious: Yes (Other)
  Sender: FDA-Public Use
  Company Number: CA-JNJFOC-20120208256

PATIENT
  Sex: Female
  Weight: 45 kg

DRUGS (4)
  1. REMICADE [Suspect]
     Indication: CROHN'S DISEASE
     Route: 042
     Dates: start: 20060101
  2. ALL OTHER THERAPEUTICS [Concomitant]
     Route: 065
  3. TYLENOL [Concomitant]
     Dosage: 2 DAYS BEFORE INFLIXIMAB INFUSION AND 1 DAY AFTER INFLIXIMAB INFUSION.
     Route: 065
  4. MISOPROSTOL [Concomitant]
     Route: 065

REACTIONS (3)
  - RECTAL HAEMORRHAGE [None]
  - ANAEMIA [None]
  - PARAESTHESIA [None]
